FAERS Safety Report 25052773 (Version 7)
Quarter: 2025Q2

REPORT INFORMATION
  Report Type: Spontaneous
  Country: US (occurrence: US)
  Receive Date: 20250307
  Receipt Date: 20250607
  Transmission Date: 20250716
  Serious: No
  Sender: SANOFI AVENTIS
  Company Number: US-SANOFI-02421228

PATIENT
  Age: 71 Year
  Sex: Female

DRUGS (2)
  1. DUPIXENT [Suspect]
     Active Substance: DUPILUMAB
     Indication: Eczema
     Route: 058
     Dates: start: 20250109, end: 20250109
  2. DUPIXENT [Suspect]
     Active Substance: DUPILUMAB
     Dosage: 300 MG QOW
     Route: 058
     Dates: start: 20250123

REACTIONS (11)
  - Injection site bruising [Unknown]
  - Injection site swelling [Unknown]
  - Injection site pain [Unknown]
  - Rash pruritic [Unknown]
  - Rash [Recovering/Resolving]
  - Exposure via skin contact [Unknown]
  - Device mechanical issue [Unknown]
  - Accidental exposure to product [Unknown]
  - Device issue [Unknown]
  - Accidental exposure to product [Unknown]
  - Exposure via skin contact [Unknown]

NARRATIVE: CASE EVENT DATE: 20250101
